FAERS Safety Report 5450321-9 (Version None)
Quarter: 2007Q3

REPORT INFORMATION
  Report Type: 
  Country: None (occurrence: None)
  Receive Date: 20070912
  Receipt Date: 20070903
  Transmission Date: 20080115
  Serious: Yes (Hospitalization)
  Sender: FDA-Public Use
  Company Number: FR-AMGEN-US242305

PATIENT
  Age: 71 Year
  Sex: Male

DRUGS (4)
  1. ENBREL [Suspect]
     Indication: RHEUMATOID ARTHRITIS
     Route: 058
     Dates: start: 20020926, end: 20070306
  2. HYPERIUM [Concomitant]
     Dosage: UNKNOWN
  3. LERCANIDIPINE HYDROCHLORIDE [Concomitant]
     Dosage: UNKNOWN
  4. CORTANCYL [Concomitant]
     Dosage: UNKNOWN

REACTIONS (4)
  - ESCHERICHIA SEPSIS [None]
  - ESCHERICHIA URINARY TRACT INFECTION [None]
  - PROSTATE INFECTION [None]
  - RENAL IMPAIRMENT [None]
